FAERS Safety Report 7142813-1 (Version None)
Quarter: 2010Q4

REPORT INFORMATION
  Report Type: 
  Country: None (occurrence: None)
  Receive Date: 20101207
  Receipt Date: 20101126
  Transmission Date: 20110411
  Serious: Yes (Life-Threatening, Hospitalization)
  Sender: FDA-Public Use
  Company Number: FR-PFIZER INC-FR-WYE-G01013108

PATIENT
  Age: 9 Month
  Sex: Female
  Weight: 8 kg

DRUGS (5)
  1. IBUPROFEN (ADVIL) [Suspect]
     Dosage: 22.5 KG, 1X/DAY
     Route: 048
     Dates: start: 20071218, end: 20071227
  2. ZITHROMAX [Suspect]
     Dosage: 1 DF, 1X/DAY
     Route: 048
     Dates: start: 20071226, end: 20071227
  3. AMOXICILLIN [Suspect]
     Indication: EAR INFECTION
     Dosage: 150 MG PER KILOGRAM
     Route: 048
     Dates: start: 20071218, end: 20071227
  4. DOLIPRANE [Suspect]
     Indication: PYREXIA
     Dosage: 60 KG, 1X/DAY
     Route: 048
     Dates: start: 20071218, end: 20071227
  5. PREVENAR [Concomitant]
     Indication: IMMUNISATION
     Dosage: 1 DF, 1X/DAY
     Dates: start: 20070726, end: 20070726

REACTIONS (4)
  - CONDITION AGGRAVATED [None]
  - MENINGITIS PNEUMOCOCCAL [None]
  - PNEUMOCOCCAL SEPSIS [None]
  - PYREXIA [None]
